FAERS Safety Report 8846605 (Version 1)
Quarter: 2012Q4

REPORT INFORMATION
  Report Type: 
  Country: AT (occurrence: AT)
  Receive Date: 20121017
  Receipt Date: 20121017
  Transmission Date: 20130627
  Serious: Yes (Other)
  Sender: FDA-Public Use
  Company Number: PHHY2012AT091235

PATIENT
  Age: 53 Year
  Sex: Male

DRUGS (5)
  1. AMANTADINE [Suspect]
     Dosage: UNK UKN, UNK
     Dates: end: 2008
  2. APOMORPHINE [Suspect]
     Dosage: 90 mg per day
     Route: 058
     Dates: start: 200710
  3. LEVODOPA [Suspect]
     Dosage: UNK UKN, UNK
     Dates: start: 200804
  4. LEVODOPA [Suspect]
     Dosage: UNK UKN, UNK
  5. PRAMIPEXOLE [Concomitant]
     Dosage: UNK UKN, UNK

REACTIONS (6)
  - Suicide attempt [Unknown]
  - Impulse-control disorder [Unknown]
  - Paranoia [Recovered/Resolved]
  - Rapid eye movements sleep abnormal [Unknown]
  - Depression [Recovered/Resolved]
  - Hallucination, visual [Unknown]
